FAERS Safety Report 7647656-8 (Version None)
Quarter: 2011Q3

REPORT INFORMATION
  Report Type: 
  Country: None (occurrence: None)
  Receive Date: 20110801
  Receipt Date: 20110801
  Transmission Date: 20111222
  Serious: No
  Sender: FDA-Public Use
  Company Number: None

PATIENT
  Age: 45 Year
  Sex: Female

DRUGS (2)
  1. IBUPROFEN [Suspect]
     Indication: PAIN
     Dosage: 800 MG
     Route: 048
  2. IBUPROFEN [Suspect]
     Indication: TOOTH REPAIR
     Dosage: 800 MG
     Route: 048

REACTIONS (2)
  - PRODUCT LABEL ISSUE [None]
  - MEDICATION ERROR [None]
